FAERS Safety Report 24088510 (Version 1)
Quarter: 2024Q3

REPORT INFORMATION
  Report Type: Report from Study
  Country: US (occurrence: None)
  Receive Date: 20240715
  Receipt Date: 20240715
  Transmission Date: 20241017
  Serious: Yes (Other)
  Sender: ASTRAZENECA
  Company Number: 2019SE23921

PATIENT
  Age: 81 Year
  Sex: Male

DRUGS (2)
  1. NEXIUM [Suspect]
     Active Substance: ESOMEPRAZOLE MAGNESIUM
     Dosage: UNKNOWN
     Route: 048
  2. NEXIUM [Suspect]
     Active Substance: ESOMEPRAZOLE MAGNESIUM
     Dosage: NEXIUM GENERIC UNKNOWN
     Route: 048

REACTIONS (7)
  - Prostate cancer [Unknown]
  - Bone cancer [Unknown]
  - Bladder cancer [Unknown]
  - Malignant neoplasm of spinal cord [Unknown]
  - Barrett^s oesophagus [Unknown]
  - Lyme disease [Unknown]
  - Insurance issue [Not Recovered/Not Resolved]
